FAERS Safety Report 5738478-3 (Version None)
Quarter: 2008Q2

REPORT INFORMATION
  Report Type: 
  Country: None (occurrence: None)
  Receive Date: 20080513
  Receipt Date: 20080501
  Transmission Date: 20081010
  Serious: Yes (Other)
  Sender: FDA-Public Use
  Company Number: TPA2008A00630

PATIENT
  Age: 6 Decade
  Sex: Female

DRUGS (2)
  1. ACTOS [Suspect]
     Indication: TYPE 2 DIABETES MELLITUS
     Dosage: 30 MG, 1 IN 1 D, PER ORAL
     Route: 048
     Dates: start: 20050101, end: 20080424
  2. METFORMIN HCL [Concomitant]

REACTIONS (1)
  - WEIGHT INCREASED [None]
